FAERS Safety Report 10593356 (Version 1)
Quarter: 2014Q4

REPORT INFORMATION
  Report Type: Spontaneous
  Country: US (occurrence: US)
  Receive Date: 20141119
  Receipt Date: 20141119
  Transmission Date: 20150529
  Serious: No
  Sender: FDA-Public Use
  Company Number: US-ASTRAZENECA-2014SE79060

PATIENT
  Sex: Male
  Weight: 88.5 kg

DRUGS (2)
  1. PULMICORT FLEXHALER [Suspect]
     Active Substance: BUDESONIDE
     Indication: EMPHYSEMA
     Dosage: TWO TIMES A DAY
     Route: 055
     Dates: start: 2014
  2. TAKES 2 OR 3 OTHER MEDICATIONS AND HE IS NOT SURE OF THEIR NAMES [Concomitant]

REACTIONS (2)
  - Intentional product misuse [Not Recovered/Not Resolved]
  - Dry mouth [Not Recovered/Not Resolved]

NARRATIVE: CASE EVENT DATE: 2014
